FAERS Safety Report 15322259 (Version 1)
Quarter: 2018Q3

REPORT INFORMATION
  Report Type: Spontaneous
  Country: PT (occurrence: PT)
  Receive Date: 20180827
  Receipt Date: 20180827
  Transmission Date: 20181010
  Serious: Yes (Other)
  Sender: FDA-Public Use
  Company Number: PHHY2018PT076474

PATIENT
  Age: 47 Year
  Sex: Male

DRUGS (2)
  1. OLANZAPINE. [Suspect]
     Active Substance: OLANZAPINE
     Indication: AGGRESSION
     Route: 065
  2. OLANZAPINE. [Suspect]
     Active Substance: OLANZAPINE
     Indication: ADJUSTMENT DISORDER WITH DEPRESSED MOOD

REACTIONS (4)
  - Hypertriglyceridaemia [Recovered/Resolved]
  - Xanthoma [Recovered/Resolved]
  - Hypercholesterolaemia [Recovered/Resolved]
  - Glycosylated haemoglobin increased [Recovered/Resolved]
